FAERS Safety Report 11937591 (Version 2)
Quarter: 2016Q1

REPORT INFORMATION
  Report Type: Spontaneous
  Country: US (occurrence: US)
  Receive Date: 20160122
  Receipt Date: 20160217
  Transmission Date: 20160526
  Serious: No
  Sender: FDA-Public Use
  Company Number: US-ASTRAZENECA-2016SE03268

PATIENT
  Age: 16585 Day
  Sex: Male

DRUGS (2)
  1. BYDUREON [Suspect]
     Active Substance: EXENATIDE
     Indication: TYPE 2 DIABETES MELLITUS
     Route: 058
     Dates: start: 20151214
  2. LEVEMIR [Concomitant]
     Active Substance: INSULIN DETEMIR
     Indication: TYPE 2 DIABETES MELLITUS

REACTIONS (5)
  - Injection site pruritus [Recovered/Resolved]
  - Injection site mass [Not Recovered/Not Resolved]
  - Injection site haemorrhage [Recovered/Resolved]
  - Product quality issue [Unknown]
  - Underdose [Unknown]

NARRATIVE: CASE EVENT DATE: 20160111
